FAERS Safety Report 12505167 (Version 1)
Quarter: 2016Q2

REPORT INFORMATION
  Report Type: Spontaneous
  Country: BR (occurrence: BR)
  Receive Date: 20160628
  Receipt Date: 20160628
  Transmission Date: 20160815
  Serious: Yes (Other)
  Sender: FDA-Public Use
  Company Number: BR-GLAXOSMITHKLINE-BR2016GSK091894

PATIENT
  Sex: Female
  Weight: 60 kg

DRUGS (2)
  1. WELLBUTRIN SR [Suspect]
     Active Substance: BUPROPION HYDROCHLORIDE
     Indication: DEPRESSION
     Dosage: 1 DF, QD, TABLET
     Route: 048
  2. WELLBUTRIN XL [Suspect]
     Active Substance: BUPROPION HYDROCHLORIDE
     Indication: DEPRESSION
     Dosage: 1 DF, QD, TABLET
     Route: 048

REACTIONS (5)
  - Product availability issue [Unknown]
  - Agitation [Not Recovered/Not Resolved]
  - Arrhythmia [Recovered/Resolved]
  - Nervousness [Not Recovered/Not Resolved]
  - Incorrect dose administered [Recovered/Resolved]
